FAERS Safety Report 23932477 (Version 1)
Quarter: 2024Q2

REPORT INFORMATION
  Report Type: Spontaneous
  Country: US (occurrence: US)
  Receive Date: 20240603
  Receipt Date: 20240603
  Transmission Date: 20240716
  Serious: Yes (Other)
  Sender: FDA-Public Use
  Company Number: US-PFIZER INC-202400181823

PATIENT
  Age: 22 Year
  Sex: Female
  Weight: 68.04 kg

DRUGS (1)
  1. SYNAREL [Suspect]
     Active Substance: NAFARELIN ACETATE
     Indication: Endometriosis
     Dosage: 1 IN THE MORNING IN 1 NOSTRIL AND 1 IN THE OTHER NOSTRIL 12 HOURS APART
     Route: 045
     Dates: start: 1991, end: 199111

REACTIONS (5)
  - Osteoporotic fracture [Unknown]
  - Osteoarthritis [Unknown]
  - Osteopenia [Unknown]
  - Osteoporosis [Not Recovered/Not Resolved]
  - Exposure during pregnancy [Unknown]

NARRATIVE: CASE EVENT DATE: 19920201
